FAERS Safety Report 4347296-2 (Version None)
Quarter: 2004Q1

REPORT INFORMATION
  Report Type: 
  Country: None (occurrence: None)
  Receive Date: 20040329
  Receipt Date: 20031230
  Transmission Date: 20041129
  Serious: No
  Sender: FDA-Public Use
  Company Number: USA031255618

PATIENT
  Age: 10 Year
  Sex: Female
  Weight: 23 kg

DRUGS (3)
  1. STRATTERA [Suspect]
     Indication: ATTENTION DEFICIT/HYPERACTIVITY DISORDER
     Dosage: 18 MG/DAY
     Dates: start: 20031219
  2. AMOXICILLIN [Concomitant]
  3. AUGMENTIN [Concomitant]

REACTIONS (5)
  - DIZZINESS [None]
  - HALLUCINATION, VISUAL [None]
  - HEADACHE [None]
  - MUSCLE TWITCHING [None]
  - NAUSEA [None]
